FAERS Safety Report 8555851 (Version 2)
Quarter: 2012Q4

REPORT INFORMATION
  Report Type: 
  Country: ID (occurrence: ID)
  Receive Date: 20120510
  Receipt Date: 20121121
  Transmission Date: 20130627
  Serious: Yes (Death, Other)
  Sender: FDA-Public Use
  Company Number: ID-BAYER-2012-045410

PATIENT
  Age: 36 Year
  Sex: Male

DRUGS (1)
  1. NEXAVAR [Suspect]
     Indication: CARCINOMA HEPATOCELLULAR
     Dosage: 200 mg, BID
     Route: 048
     Dates: start: 20120409

REACTIONS (6)
  - Hallucination [None]
  - Hepatocellular carcinoma [Fatal]
  - Dry skin [None]
  - Dry mouth [None]
  - Blood bilirubin increased [None]
  - Oedema peripheral [None]
